FAERS Safety Report 23932735 (Version 5)
Quarter: 2024Q2

REPORT INFORMATION
  Report Type: Spontaneous
  Country: PT (occurrence: PT)
  Receive Date: 20240603
  Receipt Date: 20240621
  Transmission Date: 20240716
  Serious: Yes (Other)
  Sender: FDA-Public Use
  Company Number: PT-Zentiva-2024-ZT-010557

PATIENT
  Age: 71 Year
  Sex: Female

DRUGS (1)
  1. IMATINIB [Suspect]
     Active Substance: IMATINIB
     Indication: Chronic myeloid leukaemia
     Dosage: 300 MG, UNKNOWN
     Route: 065
     Dates: start: 201805, end: 202305

REACTIONS (4)
  - Dermatomyositis [Recovered/Resolved]
  - Arthralgia [Recovered/Resolved]
  - Muscular weakness [Recovered/Resolved]
  - Myalgia [Recovered/Resolved]

NARRATIVE: CASE EVENT DATE: 20181101
